FAERS Safety Report 17054457 (Version 1)
Quarter: 2019Q4

REPORT INFORMATION
  Report Type: Spontaneous
  Country: US (occurrence: US)
  Receive Date: 20191120
  Receipt Date: 20191120
  Transmission Date: 20200122
  Serious: No
  Sender: FDA-Public Use
  Company Number: US-ASTRAZENECA-2019SF51198

PATIENT
  Sex: Male

DRUGS (2)
  1. BYDUREON [Suspect]
     Active Substance: EXENATIDE
     Route: 065
  2. BYDUREON [Suspect]
     Active Substance: EXENATIDE
     Route: 065

REACTIONS (11)
  - Device leakage [Unknown]
  - Injection site haemorrhage [Unknown]
  - Abdominal discomfort [Recovered/Resolved]
  - Injection site pain [Unknown]
  - Weight decreased [Unknown]
  - Nausea [Recovered/Resolved]
  - Incorrect dose administered by device [Unknown]
  - Dyspepsia [Recovered/Resolved]
  - Frustration tolerance decreased [Unknown]
  - Weight increased [Unknown]
  - Drug ineffective [Unknown]
